FAERS Safety Report 9419183 (Version 2)
Quarter: 2013Q3

REPORT INFORMATION
  Report Type: Spontaneous
  Country: ZA (occurrence: ZA)
  Receive Date: 20130725
  Receipt Date: 20130808
  Transmission Date: 20140515
  Serious: Yes (Other)
  Sender: FDA-Public Use
  Company Number: ZA-ELI_LILLY_AND_COMPANY-ZA201307005775

PATIENT
  Sex: Male

DRUGS (2)
  1. FLUOXETINE [Suspect]
     Dosage: 20 MG, EACH MORNING
     Route: 048
     Dates: start: 20130708
  2. ASPEN LAMZID [Concomitant]
     Dosage: 400 MG, QD
     Route: 048
     Dates: start: 20130708

REACTIONS (4)
  - Hot flush [Recovering/Resolving]
  - Abdominal discomfort [Recovering/Resolving]
  - Night sweats [Unknown]
  - Malaise [Recovering/Resolving]
